FAERS Safety Report 9664018 (Version 1)
Quarter: 2013Q4

REPORT INFORMATION
  Report Type: Report from Study
  Country: KZ (occurrence: KZ)
  Receive Date: 20131101
  Receipt Date: 20131101
  Transmission Date: 20140711
  Serious: Yes (Other)
  Sender: FDA-Public Use
  Company Number: KZ-VERTEX PHARMACEUTICALS INC-2013-010803

PATIENT
  Sex: Male

DRUGS (4)
  1. VX-950 (TELAPREVIR) [Suspect]
     Indication: HEPATITIS C
     Dosage: 375 MG, UNK
     Route: 048
     Dates: start: 20130809
  2. RIBAVIRIN [Concomitant]
     Dosage: DOSAGE FORM: TABLET
     Route: 048
  3. INTERFERON ALFA [Concomitant]
     Dosage: DOSAGE FORM: INJECTION
     Route: 058
  4. CEFTRIAXONE [Concomitant]
     Indication: BRONCHITIS CHRONIC
     Dosage: DOSAGE FORM: INJECTION
     Route: 030
     Dates: start: 20131010, end: 20131020

REACTIONS (2)
  - Cough [Not Recovered/Not Resolved]
  - Pancytopenia [Not Recovered/Not Resolved]
